FAERS Safety Report 9244429 (Version 3)
Quarter: 2013Q3

REPORT INFORMATION
  Report Type: Spontaneous
  Country: US (occurrence: US)
  Receive Date: 20130422
  Receipt Date: 20130923
  Transmission Date: 20140515
  Serious: Yes (Hospitalization, Disabling, Other)
  Sender: FDA-Public Use
  Company Number: US-009507513-2011SP037378

PATIENT
  Sex: Female
  Weight: 132.9 kg

DRUGS (6)
  1. NUVARING [Suspect]
     Indication: MENSTRUAL CYCLE MANAGEMENT
     Dates: start: 200904, end: 200908
  2. NUVARING [Suspect]
     Indication: MENORRHAGIA
  3. NUVARING [Suspect]
     Indication: POLYMENORRHOEA
  4. NUVARING [Suspect]
     Indication: CONTRACEPTION
  5. NUVARING [Suspect]
     Indication: ADENOMYOSIS
  6. MOBIC [Concomitant]
     Indication: OSTEOARTHRITIS
     Dosage: 1 DF, PRN

REACTIONS (11)
  - Bronchitis [Unknown]
  - Influenza [Unknown]
  - Pulmonary embolism [Recovering/Resolving]
  - Dyslipidaemia [Unknown]
  - Muscle strain [Unknown]
  - Coagulopathy [Unknown]
  - Off label use [Unknown]
  - Dyspnoea [Unknown]
  - Bursitis [Unknown]
  - Phlebitis superficial [Unknown]
  - Pain in extremity [Unknown]
